FAERS Safety Report 8257344-5 (Version None)
Quarter: 2012Q2

REPORT INFORMATION
  Report Type: 
  Country: None (occurrence: None)
  Receive Date: 20120403
  Receipt Date: 20120329
  Transmission Date: 20120825
  Serious: Yes (Hospitalization)
  Sender: FDA-Public Use
  Company Number: BR-ABBOTT-12P-020-0917367-00

PATIENT
  Sex: Female

DRUGS (4)
  1. ENTACAPONE [Concomitant]
     Indication: PARKINSON'S DISEASE
  2. DEPAKOTE [Suspect]
     Indication: PRODUCT USED FOR UNKNOWN INDICATION
  3. HYDROCHLOROTHIAZIDE [Suspect]
     Indication: PRODUCT USED FOR UNKNOWN INDICATION
  4. CARBIDOPA + LEVODOPA [Concomitant]
     Indication: PARKINSON'S DISEASE

REACTIONS (3)
  - RESPIRATORY TRACT INFECTION [None]
  - HYPERNATRAEMIA [None]
  - INFLUENZA [None]
